FAERS Safety Report 4847025-X (Version None)
Quarter: 2005Q4

REPORT INFORMATION
  Report Type: 
  Country: None (occurrence: None)
  Receive Date: 20051205
  Receipt Date: 20051123
  Transmission Date: 20060501
  Serious: Yes (Other)
  Sender: FDA-Public Use
  Company Number: 2005087274

PATIENT
  Age: 25 Year
  Sex: Male

DRUGS (2)
  1. NEURONTIN [Suspect]
     Indication: PAIN
     Dosage: ORAL
     Route: 048
  2. TRAZODONE HCL [Concomitant]

REACTIONS (7)
  - ANXIETY [None]
  - DISEASE RECURRENCE [None]
  - PRIAPISM [None]
  - RETCHING [None]
  - SELF-MEDICATION [None]
  - TREATMENT NONCOMPLIANCE [None]
  - VOMITING [None]
